FAERS Safety Report 17764979 (Version 1)
Quarter: 2020Q2

REPORT INFORMATION
  Report Type: Spontaneous
  Country: CA (occurrence: CA)
  Receive Date: 20200511
  Receipt Date: 20200511
  Transmission Date: 20200714
  Serious: Yes (Hospitalization)
  Sender: FDA-Public Use
  Company Number: CA-DRREDDYS-USA/CAN/20/0122732

PATIENT
  Age: 80 Year
  Sex: Female

DRUGS (5)
  1. RANITIDINE. [Concomitant]
     Active Substance: RANITIDINE
     Indication: GASTROOESOPHAGEAL REFLUX DISEASE
     Route: 065
  2. ATENOLOL. [Concomitant]
     Active Substance: ATENOLOL
     Indication: HYPERTENSION
     Route: 048
  3. DEXAMETHASONE. [Suspect]
     Active Substance: DEXAMETHASONE
     Indication: PLASMA CELL MYELOMA
     Route: 065
  4. AMLODIPINE [Concomitant]
     Active Substance: AMLODIPINE BESYLATE
     Indication: HYPERTENSION
     Route: 048
  5. ZOLEDRONIC ACID. [Suspect]
     Active Substance: ZOLEDRONIC ACID
     Indication: PLASMA CELL MYELOMA
     Route: 065

REACTIONS (11)
  - Blood osmolarity decreased [Unknown]
  - Inappropriate antidiuretic hormone secretion [Unknown]
  - Hypophosphataemia [Unknown]
  - Hypophagia [Unknown]
  - Urine abnormality [Unknown]
  - Asthenia [Unknown]
  - Mobility decreased [Unknown]
  - Hypokalaemia [Unknown]
  - Off label use [Unknown]
  - Hyponatraemia [Unknown]
  - Hypomagnesaemia [Unknown]
